FAERS Safety Report 22050702 (Version 1)
Quarter: 2023Q1

REPORT INFORMATION
  Report Type: Spontaneous
  Country: TH (occurrence: None)
  Receive Date: 20230301
  Receipt Date: 20230301
  Transmission Date: 20230417
  Serious: Yes (Other)
  Sender: FDA-Public Use
  Company Number: TH-ROCHE-3290156

PATIENT
  Age: 55 Year
  Sex: Female

DRUGS (3)
  1. PERTUZUMAB [Suspect]
     Active Substance: PERTUZUMAB
     Indication: Invasive ductal breast carcinoma
     Route: 065
  2. TRASTUZUMAB [Suspect]
     Active Substance: TRASTUZUMAB
     Indication: Invasive ductal breast carcinoma
     Route: 065
  3. DOCETAXEL [Suspect]
     Active Substance: DOCETAXEL
     Indication: Invasive ductal breast carcinoma
     Route: 065

REACTIONS (5)
  - Metastases to central nervous system [Unknown]
  - Fatigue [Unknown]
  - Headache [Unknown]
  - Ataxia [Unknown]
  - Dysdiadochokinesis [Unknown]
